FAERS Safety Report 6894307-6 (Version None)
Quarter: 2010Q3

REPORT INFORMATION
  Report Type: 
  Country: None (occurrence: None)
  Receive Date: 20100708
  Receipt Date: 20091203
  Transmission Date: 20110219
  Serious: Yes (Other)
  Sender: FDA-Public Use
  Company Number: 2009300226

PATIENT
  Age: 34 Year
  Sex: Female

DRUGS (2)
  1. CHANTIX [Suspect]
     Indication: TOBACCO USER
     Dosage: 1 MG, 2X/DAY
     Dates: start: 20091021, end: 20091116
  2. VENLAFAXINE HCL [Concomitant]

REACTIONS (3)
  - AGITATION [None]
  - HALLUCINATION [None]
  - MOOD ALTERED [None]
